FAERS Safety Report 18926716 (Version 1)
Quarter: 2021Q1

REPORT INFORMATION
  Report Type: Spontaneous
  Country: US (occurrence: US)
  Receive Date: 20210223
  Receipt Date: 20210223
  Transmission Date: 20210420
  Serious: No
  Sender: FDA-Public Use
  Company Number: US-ACCORD-210328

PATIENT
  Age: 46 Year
  Sex: Female

DRUGS (1)
  1. BUPROPION ACCORD [Suspect]
     Active Substance: BUPROPION HYDROCHLORIDE
     Indication: PRODUCT USED FOR UNKNOWN INDICATION
     Dosage: 300MG TABLETS

REACTIONS (3)
  - Product odour abnormal [Unknown]
  - Hypoacusis [Unknown]
  - Vertigo [Unknown]

NARRATIVE: CASE EVENT DATE: 202006
